FAERS Safety Report 5410285-0 (Version None)
Quarter: 2007Q3

REPORT INFORMATION
  Report Type: 
  Country: None (occurrence: None)
  Receive Date: 20070808
  Receipt Date: 20070726
  Transmission Date: 20080115
  Serious: Yes (Other)
  Sender: FDA-Public Use
  Company Number: US-CVT-070139

PATIENT
  Age: 78 Year
  Sex: Male

DRUGS (11)
  1. RANEXA [Suspect]
     Indication: ANGINA PECTORIS
     Dosage: 500 MG, BID, ORAL
     Route: 048
     Dates: start: 20070410, end: 20070612
  2. CRESTOR [Suspect]
     Dosage: 5 MG, QD, ORAL
     Route: 048
     Dates: start: 20070410
  3. TRICOR [Suspect]
     Dosage: 48 MG
  4. SIMVASTATIN [Concomitant]
  5. IMDUR [Concomitant]
  6. ATENOLOL [Concomitant]
  7. COUMADIN [Concomitant]
  8. NEXIUM [Concomitant]
  9. FOLIC ACID [Concomitant]
  10. CELEBREX [Concomitant]
  11. ASPIRIN [Concomitant]

REACTIONS (6)
  - ARTHRALGIA [None]
  - HEPATIC CANCER METASTATIC [None]
  - MUSCULOSKELETAL DISCOMFORT [None]
  - MYALGIA [None]
  - OEDEMA PERIPHERAL [None]
  - URINE COLOUR ABNORMAL [None]
